FAERS Safety Report 9900330 (Version 2)
Quarter: 2015Q4

REPORT INFORMATION
  Report Type: Report from Study
  Country: US (occurrence: US)
  Receive Date: 20140216
  Receipt Date: 20151207
  Transmission Date: 20160305
  Serious: Yes (Hospitalization, Other)
  Sender: FDA-Public Use
  Company Number: US-ROCHE-1329784

PATIENT
  Age: 59 Year
  Sex: Female
  Weight: 60.38 kg

DRUGS (19)
  1. TAXOL [Concomitant]
     Active Substance: PACLITAXEL
     Route: 040
     Dates: start: 20110309, end: 20110714
  2. EMEND [Concomitant]
     Active Substance: APREPITANT
     Dosage: 125-80 MG DAILY
     Route: 048
  3. HYDROCORTISONE SODIUM SUCCINATE [Concomitant]
     Active Substance: HYDROCORTISONE SODIUM SUCCINATE
     Indication: HYPERSENSITIVITY
     Route: 042
  4. CARBOPLATIN. [Concomitant]
     Active Substance: CARBOPLATIN
     Route: 040
     Dates: start: 20110309, end: 20110714
  5. DEXAMETHASONE. [Concomitant]
     Active Substance: DEXAMETHASONE
     Dosage: 12 HRS AND 6 HRS BEFORE PACLITAXEL CHEMO
     Route: 048
  6. AVASTIN [Suspect]
     Active Substance: BEVACIZUMAB
     Indication: CERVIX CARCINOMA
     Route: 040
     Dates: start: 20110309, end: 20111122
  7. FAMOTIDINE. [Concomitant]
     Active Substance: FAMOTIDINE
     Route: 042
  8. ALOXI [Concomitant]
     Active Substance: PALONOSETRON HYDROCHLORIDE
     Route: 042
  9. VICODIN [Concomitant]
     Active Substance: ACETAMINOPHEN\HYDROCODONE BITARTRATE
     Indication: PAIN
     Dosage: 5MG-500MG TAKE 1 PO Q4H PRN PAIN
     Route: 048
  10. METHYLPREDNISOLONE SODIUM SUCCINATE. [Concomitant]
     Active Substance: METHYLPREDNISOLONE SODIUM SUCCINATE
     Indication: HYPERSENSITIVITY
     Route: 065
  11. SENOKOT [Concomitant]
     Active Substance: SENNOSIDES
     Route: 048
  12. NEURONTIN [Concomitant]
     Active Substance: GABAPENTIN
     Dosage: FOR 3 DAYS
     Route: 048
  13. VOLTAREN [Concomitant]
     Active Substance: DICLOFENAC SODIUM
     Dosage: TAKE 1 APPLICATION TOPICAL QID
     Route: 061
  14. PACLITAXEL. [Concomitant]
     Active Substance: PACLITAXEL
     Route: 040
  15. PEGFILGRASTIM [Suspect]
     Active Substance: PEGFILGRASTIM
     Indication: CERVIX CARCINOMA
     Route: 058
  16. PROCHLORPERAZINE MALEATE. [Concomitant]
     Active Substance: PROCHLORPERAZINE MALEATE
     Indication: PAIN
     Dosage: TAKE 1 PO Q6H PRN PAIN
     Route: 048
  17. VITAMIN C [Concomitant]
     Active Substance: ASCORBIC ACID
     Route: 048
  18. BENADRYL [Concomitant]
     Active Substance: DIPHENHYDRAMINE HYDROCHLORIDE
     Indication: HYPERSENSITIVITY
     Route: 042
  19. CEPHALEXIN. [Concomitant]
     Active Substance: CEPHALEXIN
     Route: 048

REACTIONS (20)
  - Off label use [Unknown]
  - Infection [Unknown]
  - Febrile neutropenia [Unknown]
  - Phlebitis [Recovering/Resolving]
  - Perineal ulceration [Unknown]
  - Pain [Unknown]
  - Thrombophlebitis [Unknown]
  - Neutropenia [Unknown]
  - Cyst [Unknown]
  - Malaise [Unknown]
  - Neuropathy peripheral [Unknown]
  - Dermatitis acneiform [Unknown]
  - Thrombosis [Unknown]
  - Dehydration [Unknown]
  - Congenital neuropathy [Unknown]
  - Mucosal atrophy [Unknown]
  - Thrombocytopenia [Unknown]
  - Pelvic pain [Unknown]
  - Pain in extremity [Unknown]
  - Pyrexia [Unknown]

NARRATIVE: CASE EVENT DATE: 20110318
